FAERS Safety Report 17771895 (Version 1)
Quarter: 2020Q2

REPORT INFORMATION
  Report Type: Report from Study
  Country: US (occurrence: US)
  Receive Date: 20200512
  Receipt Date: 20200512
  Transmission Date: 20200714
  Serious: Yes (Death, Hospitalization, Other)
  Sender: FDA-Public Use
  Company Number: US-GILEAD-2020-0465892

PATIENT
  Age: 69 Year
  Sex: Female

DRUGS (1)
  1. LEDIPASVIR/SOFOSBUVIR [Suspect]
     Active Substance: LEDIPASVIR\SOFOSBUVIR
     Indication: HEPATITIS C
     Dosage: 90/400 MG, UNK
     Route: 048
     Dates: end: 2019

REACTIONS (4)
  - Abdominal distension [Unknown]
  - Death [Fatal]
  - Hepatic failure [Unknown]
  - Hepatic cirrhosis [Unknown]
